FAERS Safety Report 4352144-0 (Version None)
Quarter: 2004Q2

REPORT INFORMATION
  Report Type: 
  Country: None (occurrence: None)
  Receive Date: 20040428
  Receipt Date: 20031104
  Transmission Date: 20050107
  Serious: Yes (Hospitalization, Other)
  Sender: FDA-Public Use
  Company Number: KII-2003-0009816

PATIENT
  Age: 30 Year
  Sex: Female

DRUGS (9)
  1. OXYCONTIN [Suspect]
     Indication: DRUG USE FOR UNKNOWN INDICATION
     Dosage: ORAL
     Route: 048
  2. ACETAMINOPHEN [Suspect]
     Indication: DRUG USE FOR UNKNOWN INDICATION
  3. PROPOXYPHENE HCL AND ACETAMINOPHEN (DEXTROPOPOXYPHENE HYDROCHLORIDE) [Suspect]
     Indication: DRUG USE FOR UNKNOWN INDICATION
  4. BENZODIAZEPINE DERIVATIVES () [Suspect]
     Indication: DRUG USE FOR UNKNOWN INDICATION
  5. METHADONE (METADONE) [Suspect]
     Indication: DRUG USE FOR UNKNOWN INDICATION
  6. METHYLSALICYLATE (METHYL SALICYLATE) [Suspect]
     Indication: DRUG USE FOR UNKNOWN INDICATION
  7. DIPHENHYDRAMINE HCL [Suspect]
     Indication: DRUG USE FOR UNKNOWN INDICATION
  8. COCAINE (COCAINE) [Suspect]
     Indication: DRUG USE FOR UNKNOWN INDICATION
  9. TETRAHYDROCANNABINOL (TETRAHYDRACANNIBONOL) [Suspect]
     Indication: DRUG USE FOR UNKNOWN INDICATION

REACTIONS (24)
  - ABNORMAL BEHAVIOUR [None]
  - AGITATION [None]
  - ASTHENIA [None]
  - BLOOD PRESSURE SYSTOLIC DECREASED [None]
  - BLOOD URINE PRESENT [None]
  - CHROMATURIA [None]
  - DRUG ABUSER [None]
  - DRUG DEPENDENCE [None]
  - DYSARTHRIA [None]
  - DYSPNOEA [None]
  - HEART INJURY [None]
  - HYPOTHERMIA [None]
  - JOINT INJURY [None]
  - LOSS OF CONSCIOUSNESS [None]
  - MULTIPLE DRUG OVERDOSE [None]
  - PAIN IN EXTREMITY [None]
  - PERITONEAL HAEMORRHAGE [None]
  - PERONEAL NERVE PALSY [None]
  - RESPIRATORY ARREST [None]
  - RESTLESSNESS [None]
  - RHABDOMYOLYSIS [None]
  - SENSORY DISTURBANCE [None]
  - SOMNOLENCE [None]
  - WHITE BLOOD CELL COUNT INCREASED [None]
